FAERS Safety Report 4410531-6 (Version None)
Quarter: 2004Q3

REPORT INFORMATION
  Report Type: 
  Country: None (occurrence: None)
  Receive Date: 20040726
  Receipt Date: 20040712
  Transmission Date: 20050211
  Serious: Yes (Death, Other)
  Sender: FDA-Public Use
  Company Number: 2004047420

PATIENT
  Age: 26 Year
  Sex: Male

DRUGS (4)
  1. DOXYCYCLINE [Suspect]
     Indication: PLASMODIUM FALCIPARUM INFECTION
  2. QUININE (QUININE) [Suspect]
     Indication: ILL-DEFINED DISORDER
     Dosage: 1200 MG (600 MG, 2 IN 1 D), INTRAVENOUS
     Route: 042
  3. CHLOROQUINE (CHLOROQUINE) [Concomitant]
  4. CEFUROXIME [Concomitant]

REACTIONS (33)
  - ASPARTATE AMINOTRANSFERASE INCREASED [None]
  - ASPERGILLOSIS [None]
  - BLOOD POTASSIUM INCREASED [None]
  - BLOOD PRESSURE SYSTOLIC INCREASED [None]
  - BLOOD SODIUM DECREASED [None]
  - BRAIN ABSCESS [None]
  - CEREBRAL INFARCTION [None]
  - CONFUSIONAL STATE [None]
  - DIARRHOEA [None]
  - DISORIENTATION [None]
  - EYELID PTOSIS [None]
  - FUNGAL INFECTION [None]
  - GENERAL PHYSICAL HEALTH DETERIORATION [None]
  - HAEMODIALYSIS [None]
  - HAEMOGLOBIN DECREASED [None]
  - INTRACRANIAL PRESSURE INCREASED [None]
  - JAUNDICE [None]
  - LOBAR PNEUMONIA [None]
  - LUNG INFECTION PSEUDOMONAL [None]
  - METABOLIC ACIDOSIS [None]
  - MUCORMYCOSIS [None]
  - MUSCLE SPASMS [None]
  - MYOCARDIAC ABSCESS [None]
  - PLASMODIUM FALCIPARUM INFECTION [None]
  - PLATELET COUNT DECREASED [None]
  - PRODUCTIVE COUGH [None]
  - RASH PAPULAR [None]
  - RENAL ABSCESS [None]
  - RENAL FAILURE [None]
  - SOMNOLENCE [None]
  - SPLEEN PALPABLE [None]
  - SPUTUM CULTURE POSITIVE [None]
  - TREMOR [None]
